FAERS Safety Report 5644047-6 (Version None)
Quarter: 2008Q1

REPORT INFORMATION
  Report Type: 
  Country: None (occurrence: None)
  Receive Date: 20080131
  Receipt Date: 20071121
  Transmission Date: 20080703
  Serious: Yes (Other)
  Sender: FDA-Public Use
  Company Number: 163-21880-071000040

PATIENT
  Age: 60 Year
  Sex: Female
  Weight: 84.8226 kg

DRUGS (4)
  1. REVLIMID [Suspect]
     Indication: MULTIPLE MYELOMA
     Dosage: 10 MG, DAILY FOR 21 DAYS, ORAL ; 5 MG, 1 IN 1 D, ORAL  ; 10 MG, EVERY OTHER DAY, ORAL
     Route: 048
     Dates: start: 20070801, end: 20071001
  2. REVLIMID [Suspect]
     Indication: MULTIPLE MYELOMA
     Dosage: 10 MG, DAILY FOR 21 DAYS, ORAL ; 5 MG, 1 IN 1 D, ORAL  ; 10 MG, EVERY OTHER DAY, ORAL
     Route: 048
     Dates: start: 20071031
  3. EXJADE (DEFERASIROX) (TABLETS) [Concomitant]
  4. ARANESP [Concomitant]

REACTIONS (3)
  - ADVERSE EVENT [None]
  - DIARRHOEA [None]
  - PANCYTOPENIA [None]
